FAERS Safety Report 8170190-6 (Version None)
Quarter: 2012Q1

REPORT INFORMATION
  Report Type: 
  Country: None (occurrence: None)
  Receive Date: 20120228
  Receipt Date: 20120222
  Transmission Date: 20120608
  Serious: Yes (Life-Threatening, Hospitalization)
  Sender: FDA-Public Use
  Company Number: PHHO2010CA05743

PATIENT
  Sex: Male
  Weight: 85 kg

DRUGS (3)
  1. EVEROLIMUS [Suspect]
     Indication: LIVER TRANSPLANT
     Dosage: UNK
     Dates: start: 20091117, end: 20100318
  2. TACROLIMUS [Suspect]
     Indication: LIVER TRANSPLANT
     Dosage: 0.5 MG, BID
     Route: 048
     Dates: start: 20091116
  3. PREDNISOLONE [Suspect]
     Indication: LIVER TRANSPLANT
     Dosage: UNK
     Dates: end: 20100318

REACTIONS (11)
  - ACTIVITIES OF DAILY LIVING IMPAIRED [None]
  - HEADACHE [None]
  - ACUTE RESPIRATORY DISTRESS SYNDROME [None]
  - FATIGUE [None]
  - ATELECTASIS [None]
  - ADVERSE DRUG REACTION [None]
  - DYSPNOEA EXERTIONAL [None]
  - PLEURAL EFFUSION [None]
  - DELIRIUM [None]
  - PNEUMONITIS [None]
  - RESPIRATORY FAILURE [None]
